FAERS Safety Report 12077691 (Version 1)
Quarter: 2016Q1

REPORT INFORMATION
  Report Type: Spontaneous
  Country: US (occurrence: US)
  Receive Date: 20160215
  Receipt Date: 20160215
  Transmission Date: 20160526
  Serious: No
  Sender: FDA-Public Use
  Company Number: US-BIOGEN-2016BI00187090

PATIENT
  Age: 33 Year
  Sex: Female

DRUGS (1)
  1. TYSABRI [Suspect]
     Active Substance: NATALIZUMAB
     Indication: MULTIPLE SCLEROSIS
     Route: 042
     Dates: start: 20141112, end: 20151007

REACTIONS (8)
  - Multiple sclerosis relapse [Unknown]
  - Pharyngitis streptococcal [Recovered/Resolved]
  - Muscular weakness [Unknown]
  - Fungal infection [Recovered/Resolved]
  - Pharyngitis [Unknown]
  - Arthralgia [Unknown]
  - Respiratory tract infection [Unknown]
  - Spinal pain [Unknown]

NARRATIVE: CASE EVENT DATE: 201411
